FAERS Safety Report 24031241 (Version 2)
Quarter: 2024Q3

REPORT INFORMATION
  Report Type: Spontaneous
  Country: BR (occurrence: BR)
  Receive Date: 20240629
  Receipt Date: 20240716
  Transmission Date: 20241016
  Serious: Yes (Other)
  Sender: SANDOZ
  Company Number: BR-SANDOZ-SDZ2024BR060705

PATIENT
  Sex: Female

DRUGS (9)
  1. ALPRAZOLAM [Suspect]
     Active Substance: ALPRAZOLAM
     Indication: Sleep disorder
     Dosage: UNK (FOR MORE THAN 10 YEARS)
     Route: 065
  2. BROMAZEPAM [Suspect]
     Active Substance: BROMAZEPAM
     Indication: Sleep disorder
     Route: 065
  3. TRAZODONE HYDROCHLORIDE [Suspect]
     Active Substance: TRAZODONE HYDROCHLORIDE
     Indication: Product used for unknown indication
     Route: 065
  4. BROMAZEPAM [Suspect]
     Active Substance: BROMAZEPAM
     Indication: Sleep disorder
     Dosage: 3 MG, QD (ONCE AT NIGHT)
     Route: 065
     Dates: start: 202308
  5. QUETIAPINE [Suspect]
     Active Substance: QUETIAPINE
     Indication: Sleep disorder
     Dosage: UNK (MORE THAN 10 YEARS )
     Route: 065
  6. RIVOTRIL [Suspect]
     Active Substance: CLONAZEPAM
     Indication: Sleep disorder
     Dosage: UNK (MORE THAN 10 YEARS)
     Route: 065
  7. DESVEN [Concomitant]
     Indication: Product used for unknown indication
     Route: 065
  8. LITHIUM [Concomitant]
     Active Substance: LITHIUM
     Indication: Product used for unknown indication
     Route: 065
  9. LOSARTAN [Concomitant]
     Active Substance: LOSARTAN
     Indication: Hypertension
     Dosage: UNK ( X 50 MILLIGRAM IN)
     Route: 065

REACTIONS (15)
  - Fall [Recovered/Resolved]
  - Drug dependence [Not Recovered/Not Resolved]
  - Hypoaesthesia [Unknown]
  - Syncope [Unknown]
  - Headache [Unknown]
  - Swelling [Unknown]
  - Muscular weakness [Not Recovered/Not Resolved]
  - Hypertension [Not Recovered/Not Resolved]
  - Blood cholesterol increased [Not Recovered/Not Resolved]
  - Nausea [Not Recovered/Not Resolved]
  - Fatigue [Not Recovered/Not Resolved]
  - Abdominal distension [Not Recovered/Not Resolved]
  - Dizziness [Not Recovered/Not Resolved]
  - Vomiting [Not Recovered/Not Resolved]
  - Off label use [Unknown]

NARRATIVE: CASE EVENT DATE: 19900101
